FAERS Safety Report 8172761-X (Version None)
Quarter: 2012Q1

REPORT INFORMATION
  Report Type: 
  Country: None (occurrence: None)
  Receive Date: 20120229
  Receipt Date: 20120217
  Transmission Date: 20120608
  Serious: No
  Sender: FDA-Public Use
  Company Number: US-JNJFOC-20120210632

PATIENT
  Sex: Female
  Weight: 68.04 kg

DRUGS (7)
  1. FENTANYL-100 [Suspect]
     Indication: PELVIC FRACTURE
     Route: 062
     Dates: start: 20120211
  2. VICODIN [Concomitant]
     Indication: PAIN
     Route: 048
  3. UNKNOWN MEDICATION [Concomitant]
     Indication: NAUSEA
     Route: 048
  4. METOPROLOL [Concomitant]
     Indication: PRODUCT USED FOR UNKNOWN INDICATION
     Route: 048
  5. UNKNOWN MEDICATION [Concomitant]
     Indication: ARTHRITIS
     Route: 048
  6. FENTANYL-100 [Suspect]
     Indication: UPPER LIMB FRACTURE
     Route: 062
     Dates: start: 20120211
  7. PREDNISOLONE [Concomitant]
     Indication: PRODUCT USED FOR UNKNOWN INDICATION
     Route: 048

REACTIONS (3)
  - APPLICATION SITE DISCOLOURATION [None]
  - PRODUCT QUALITY ISSUE [None]
  - DRUG ADMINISTERED AT INAPPROPRIATE SITE [None]
